FAERS Safety Report 4450360-0 (Version None)
Quarter: 2004Q3

REPORT INFORMATION
  Report Type: 
  Country: None (occurrence: None)
  Receive Date: 20040914
  Receipt Date: 20040902
  Transmission Date: 20050211
  Serious: No
  Sender: FDA-Public Use
  Company Number: 2004GB00417

PATIENT
  Age: 19 Year
  Sex: Female

DRUGS (4)
  1. DIPRIVAN [Suspect]
     Indication: ANAESTHESIA
     Dosage: 80 MG ONCE IV
     Route: 042
     Dates: start: 20031017, end: 20031017
  2. DIPRIVAN [Suspect]
     Indication: LAPAROSCOPY
     Dosage: 80 MG ONCE IV
     Route: 042
     Dates: start: 20031017, end: 20031017
  3. ONDANSETRON [Concomitant]
  4. FENTANYL [Concomitant]

REACTIONS (2)
  - DYSTONIA [None]
  - OPISTHOTONUS [None]
